FAERS Safety Report 5740875-7 (Version None)
Quarter: 2008Q2

REPORT INFORMATION
  Report Type: 
  Country: None (occurrence: None)
  Receive Date: 20080516
  Receipt Date: 20080421
  Transmission Date: 20081010
  Serious: No
  Sender: FDA-Public Use
  Company Number: US-BOEHRINGER INGELHEIM GMBH, GERMANY-2007-BP-26880BP

PATIENT
  Sex: Female

DRUGS (13)
  1. SPIRIVA [Suspect]
     Indication: CHRONIC OBSTRUCTIVE PULMONARY DISEASE
     Dates: start: 20080219, end: 20080220
  2. SPIRIVA [Suspect]
     Indication: ASTHMA
  3. ALBUTEROL SULFATE [Concomitant]
  4. LASIX [Concomitant]
  5. AGGRENOX [Concomitant]
  6. PREVACID [Concomitant]
  7. XALATAN [Concomitant]
  8. AMITRIPTYLINE HCL [Concomitant]
  9. CLARITIN-D [Concomitant]
  10. ACTOS [Concomitant]
  11. SINGULAIR [Concomitant]
  12. LEVEMIR [Concomitant]
  13. INSULIN [Concomitant]

REACTIONS (2)
  - HYPERSENSITIVITY [None]
  - URTICARIA [None]
